FAERS Safety Report 20714412 (Version 1)
Quarter: 2022Q2

REPORT INFORMATION
  Report Type: Spontaneous
  Country: US (occurrence: None)
  Receive Date: 20220415
  Receipt Date: 20220415
  Transmission Date: 20220721
  Serious: Yes (Death)
  Sender: FDA-Public Use
  Company Number: None

PATIENT
  Age: 81 Year
  Sex: Female
  Weight: 46 kg

DRUGS (9)
  1. REGORAFENIB [Suspect]
     Active Substance: REGORAFENIB
     Indication: Appendix cancer
     Dosage: FREQUENCY : DAILY;?
     Route: 048
     Dates: start: 20220310, end: 20220325
  2. Dronabinol 5mg BID [Concomitant]
  3. Milk of magnesia 30ml daily [Concomitant]
  4. metoclopramide 10mg QID [Concomitant]
  5. prochlorperazine 10mg IV q6hprn [Concomitant]
  6. sucralfate 1g QID [Concomitant]
  7. pantoprazole 40mg q12h [Concomitant]
  8. diphenhydramine 6.25mg TID [Concomitant]
  9. guaifenesin 200mg q4h [Concomitant]

REACTIONS (9)
  - Duodenal obstruction [None]
  - Sinus tachycardia [None]
  - Myocardial infarction [None]
  - Electrocardiogram ST segment abnormal [None]
  - Pleural effusion [None]
  - Unresponsive to stimuli [None]
  - Pulse absent [None]
  - Respiratory arrest [None]
  - Ventricular extrasystoles [None]

NARRATIVE: CASE EVENT DATE: 20220325
